FAERS Safety Report 8974110 (Version 1)
Quarter: 2013Q1

REPORT INFORMATION
  Report Type: Spontaneous
  Country: US (occurrence: None)
  Receive Date: 20121217
  Receipt Date: 20121217
  Transmission Date: 20140127
  Serious: Yes (Hospitalization, Other)
  Sender: FDA-Public Use
  Company Number: None

PATIENT
  Sex: Female
  Weight: 121.56 kg

DRUGS (1)
  1. FONDAPARINUX SODIUM (ARIXTRA) [Suspect]
     Indication: THROMBOSIS PROPHYLAXIS
     Dosage: 5MG; ONCE/DAY; 057
     Dates: start: 20120515, end: 20120517

REACTIONS (1)
  - Deep vein thrombosis [None]
